FAERS Safety Report 22520173 (Version 1)
Quarter: 2023Q2

REPORT INFORMATION
  Report Type: Spontaneous
  Country: US (occurrence: US)
  Receive Date: 20230605
  Receipt Date: 20230605
  Transmission Date: 20230721
  Serious: No
  Sender: FDA-Public Use
  Company Number: US-SA-2023SA167982

PATIENT

DRUGS (1)
  1. TAXOTERE [Suspect]
     Active Substance: DOCETAXEL
     Indication: Ocular discomfort
     Dosage: UNK
     Route: 031

REACTIONS (2)
  - Lacrimal structural disorder [Unknown]
  - Lacrimation increased [Unknown]
